FAERS Safety Report 4928969-7 (Version None)
Quarter: 2006Q1

REPORT INFORMATION
  Report Type: 
  Country: None (occurrence: None)
  Receive Date: 20060301
  Receipt Date: 20060220
  Transmission Date: 20060701
  Serious: Yes (Other)
  Sender: FDA-Public Use
  Company Number: GB-GLAXOSMITHKLINE-B0412852A

PATIENT
  Age: 69 Year
  Sex: Female

DRUGS (1)
  1. SALMETEROL [Suspect]
     Dosage: 25MCG TWICE PER DAY
     Route: 055
     Dates: start: 20051230, end: 20060103

REACTIONS (3)
  - CHAPPED LIPS [None]
  - GLOSSODYNIA [None]
  - TONGUE BLISTERING [None]
